FAERS Safety Report 9959620 (Version 1)
Quarter: 2014Q1

REPORT INFORMATION
  Report Type: Spontaneous
  Country: JP (occurrence: None)
  Receive Date: 20140227
  Receipt Date: 20140227
  Transmission Date: 20141002
  Serious: Yes (Other)
  Sender: FDA-Public Use
  Company Number: B0971469A

PATIENT
  Age: 40 Year
  Sex: Female

DRUGS (2)
  1. PAROXETINE HYDROCHLORIDE (FORMULATION UNKNOWN) (PAROXETINE HYDROCHLORIDE) [Suspect]
     Indication: PRODUCT USED FOR UNKNOWN INDICATION
     Route: 048
  2. ESTAZOLAM [Concomitant]

REACTIONS (3)
  - Overdose [None]
  - Depressed level of consciousness [None]
  - Somnolence [None]
